FAERS Safety Report 10060854 (Version 2)
Quarter: 2014Q2

REPORT INFORMATION
  Report Type: Report from Study
  Country: US (occurrence: US)
  Receive Date: 20140404
  Receipt Date: 20140417
  Transmission Date: 20141212
  Serious: Yes (Other)
  Sender: FDA-Public Use
  Company Number: US-ACTELION-A-US2014-97090

PATIENT
  Age: 78 Year
  Sex: Female

DRUGS (2)
  1. MACITENTAN [Suspect]
     Indication: PULMONARY ARTERIAL HYPERTENSION
     Dosage: 10 MG, QD
     Route: 048
     Dates: start: 201403
  2. TYVASO [Concomitant]

REACTIONS (3)
  - Fall [Recovering/Resolving]
  - Compression fracture [Recovering/Resolving]
  - Somnolence [Unknown]
